FAERS Safety Report 6138686-6 (Version None)
Quarter: 2009Q1

REPORT INFORMATION
  Report Type: 
  Country: None (occurrence: None)
  Receive Date: 20090327
  Receipt Date: 20090318
  Transmission Date: 20090719
  Serious: Yes (Hospitalization)
  Sender: FDA-Public Use
  Company Number: 188882USA

PATIENT
  Age: 80 Year
  Sex: Male

DRUGS (8)
  1. BISOPROLOL FUMARATE [Suspect]
     Dosage: 1.5 DOSAGE FORMS, 1 D,ORAL
     Route: 048
  2. ATORVASTATIN [Suspect]
     Indication: HYPERCHOLESTEROLAEMIA
     Dosage: ORAL
     Route: 048
  3. ZOLPIDEM TARTRATE [Suspect]
     Indication: INSOMNIA
     Dosage: ORAL
     Route: 048
  4. FUROSEMIDE [Suspect]
     Dosage: 20 MG (1 IN 1 D),ORAL
     Route: 048
  5. MORPHINE SULFATE [Suspect]
     Indication: ANALGESIA
     Dosage: 40 MG (2 IN 1 D),ORAL
     Route: 048
  6. FLUINDIONE [Concomitant]
  7. LACTULOSE [Concomitant]
  8. POTASSIUM CHLORIDE [Concomitant]

REACTIONS (4)
  - CONCUSSION [None]
  - DRUG INTERACTION [None]
  - DYSSTASIA [None]
  - FALL [None]
